FAERS Safety Report 15794187 (Version 1)
Quarter: 2018Q4

REPORT INFORMATION
  Report Type: Spontaneous
  Country: US (occurrence: US)
  Receive Date: 20181213
  Receipt Date: 20181213
  Transmission Date: 20190205
  Serious: No
  Sender: FDA-Public Use
  Company Number: None

PATIENT
  Age: 75 Year
  Sex: Male

DRUGS (1)
  1. DABIGATRAN [Suspect]
     Active Substance: DABIGATRAN
     Indication: DEEP VEIN THROMBOSIS
     Route: 048
     Dates: start: 20180615, end: 20181031

REACTIONS (6)
  - Fall [None]
  - Asthenia [None]
  - Gastric haemorrhage [None]
  - Hyperhidrosis [None]
  - Hypotension [None]
  - Subdural haematoma [None]

NARRATIVE: CASE EVENT DATE: 20181031
